FAERS Safety Report 20443478 (Version 1)
Quarter: 2022Q1

REPORT INFORMATION
  Report Type: Other
  Country: GB (occurrence: GB)
  Receive Date: 20220208
  Receipt Date: 20220208
  Transmission Date: 20220424
  Serious: Yes (Other)
  Sender: FDA-Public Use
  Company Number: GB-MACLEODS PHARMA UK LTD-MAC2022034297

PATIENT

DRUGS (1)
  1. CLOPIDOGREL [Suspect]
     Active Substance: CLOPIDOGREL BISULFATE
     Indication: Ill-defined disorder
     Dosage: 75 MILLIGRAM, QD
     Route: 048
     Dates: start: 20210701, end: 20210710

REACTIONS (3)
  - Peripheral swelling [Recovered/Resolved]
  - Vomiting [Recovered/Resolved]
  - Dermatitis allergic [Recovered/Resolved]

NARRATIVE: CASE EVENT DATE: 20210710
